FAERS Safety Report 5470078-5 (Version None)
Quarter: 2007Q3

REPORT INFORMATION
  Report Type: 
  Country: None (occurrence: None)
  Receive Date: 20070927
  Receipt Date: 20070919
  Transmission Date: 20080115
  Serious: Yes (Death, Hospitalization)
  Sender: FDA-Public Use
  Company Number: GB-BAXTER-2007BH007762

PATIENT
  Age: 53 Year
  Sex: Male

DRUGS (10)
  1. GENTAMICIN SULFATE [Suspect]
     Indication: INFECTION
     Dosage: DOSE UNIT:UNKNOWN
     Route: 065
  2. AUGMENTIN '125' [Suspect]
     Indication: INFECTION
     Dosage: DOSE UNIT:UNKNOWN
     Route: 065
  3. LEVOFLOXACIN [Suspect]
     Indication: INFECTION
     Dosage: DOSE UNIT:UNKNOWN
     Route: 065
  4. VANCOMYCIN [Suspect]
     Indication: INFECTION
     Dosage: DOSE UNIT:UNKNOWN
     Route: 065
  5. METRONIDAZOLE [Suspect]
     Indication: INFECTION
     Dosage: DOSE UNIT:UNKNOWN
     Route: 065
  6. PARACETAMOL [Suspect]
     Indication: ANALGESIA
     Dosage: DOSE UNIT:UNKNOWN
     Route: 065
  7. DICLOFENAC [Concomitant]
     Indication: ANALGESIA
  8. OMEPRAZOLE [Concomitant]
  9. METOCLOPRAMIDE [Concomitant]
  10. PARENTERAL NUTRITION SOLUTION [Concomitant]

REACTIONS (3)
  - DISORIENTATION [None]
  - METABOLIC ACIDOSIS [None]
  - MYOCARDIAL INFARCTION [None]
